FAERS Safety Report 24652000 (Version 1)
Quarter: 2024Q4

REPORT INFORMATION
  Report Type: Spontaneous
  Country: US (occurrence: US)
  Receive Date: 20241122
  Receipt Date: 20241122
  Transmission Date: 20250114
  Serious: No
  Sender: ALVOGEN
  Company Number: US-ALVOGEN-2024094856

PATIENT
  Sex: Female
  Weight: 81 kg

DRUGS (2)
  1. TERIPARATIDE [Suspect]
     Active Substance: TERIPARATIDE
     Indication: Osteoporosis
     Dosage: 20MCG DAILY- 620MCG?FREQUENCY: DAILY?EXPIRATION DATE: 30-JUN-2025?3 DOSES REMAINING
     Route: 058
     Dates: start: 20230210
  2. TERIPARATIDE [Suspect]
     Active Substance: TERIPARATIDE
     Indication: Osteoporosis
     Dosage: SHE GOT THE ADDITIONAL PEN.
     Route: 058

REACTIONS (5)
  - Device malfunction [Unknown]
  - Device operational issue [Unknown]
  - Product dose omission issue [Unknown]
  - Device defective [Unknown]
  - Needle issue [Unknown]
